FAERS Safety Report 10120767 (Version 5)
Quarter: 2016Q3

REPORT INFORMATION
  Report Type: Spontaneous
  Country: US (occurrence: US)
  Receive Date: 20140425
  Receipt Date: 20160811
  Transmission Date: 20161108
  Serious: Yes (Other)
  Sender: FDA-Public Use
  Company Number: US-GLAXOSMITHKLINE-A1070315A

PATIENT
  Sex: Female
  Weight: 43.36 kg

DRUGS (17)
  1. BENLYSTA [Suspect]
     Active Substance: BELIMUMAB
     Dosage: UNK
  2. PLAQUENIL [Concomitant]
     Active Substance: HYDROXYCHLOROQUINE SULFATE
     Dosage: 200 MG, UNK
  3. ACYCLOVIR. [Concomitant]
     Active Substance: ACYCLOVIR
     Dosage: 400 MG, QD
  4. SYNTHROID [Concomitant]
     Active Substance: LEVOTHYROXINE SODIUM
     Dosage: 50 UG, UNK
  5. DIAZEPAM. [Concomitant]
     Active Substance: DIAZEPAM
     Dosage: 5 MG, Q6H PRN
  6. RESTORIL [Concomitant]
     Active Substance: TEMAZEPAM
  7. PAXIL [Concomitant]
     Active Substance: PAROXETINE HYDROCHLORIDE
     Dosage: 10 MG, UNK
  8. BENLYSTA [Suspect]
     Active Substance: BELIMUMAB
     Dosage: UNK
     Dates: start: 20150430, end: 20150430
  9. SALAGEN [Concomitant]
     Active Substance: PILOCARPINE HYDROCHLORIDE
     Dosage: 5 MG, QID
     Dates: start: 2012
  10. BENLYSTA [Suspect]
     Active Substance: BELIMUMAB
     Dosage: UNK
  11. SYNTHROID [Concomitant]
     Active Substance: LEVOTHYROXINE SODIUM
     Dosage: 0.25 MG, UNK
  12. FLONASE [Concomitant]
     Active Substance: FLUTICASONE PROPIONATE
  13. BENLYSTA [Suspect]
     Active Substance: BELIMUMAB
     Dosage: UNK
  14. HYDROXYCHLOROQUINE [Concomitant]
     Active Substance: HYDROXYCHLOROQUINE
     Dosage: 200 MG, UNK
  15. BENLYSTA [Suspect]
     Active Substance: BELIMUMAB
     Indication: SYSTEMIC LUPUS ERYTHEMATOSUS
     Dosage: 400 MG, UNK
     Dates: start: 201309, end: 20140227
  16. BENLYSTA [Suspect]
     Active Substance: BELIMUMAB
     Dosage: UNK
  17. METHOTREXATE. [Suspect]
     Active Substance: METHOTREXATE
     Indication: PRODUCT USED FOR UNKNOWN INDICATION

REACTIONS (9)
  - Performance status decreased [Unknown]
  - Asthenia [Not Recovered/Not Resolved]
  - Migraine [Unknown]
  - Adverse drug reaction [Unknown]
  - Drug administration error [Unknown]
  - Weight fluctuation [Unknown]
  - CSF test abnormal [Recovered/Resolved]
  - Headache [Not Recovered/Not Resolved]
  - Diffuse large B-cell lymphoma stage III [Unknown]

NARRATIVE: CASE EVENT DATE: 2013
